FAERS Safety Report 9370286 (Version 1)
Quarter: 2013Q2

REPORT INFORMATION
  Report Type: Spontaneous
  Country: DE (occurrence: DE)
  Receive Date: 20130626
  Receipt Date: 20130626
  Transmission Date: 20140414
  Serious: Yes (Other)
  Sender: FDA-Public Use
  Company Number: DE-NICOBRDEVP-2013-11201

PATIENT
  Sex: Female

DRUGS (1)
  1. PANTOPRAZOLE SODIUM (UNKNOWN) [Suspect]
     Indication: DYSPEPSIA
     Dosage: 20 MG, 1/WEEK
     Route: 048

REACTIONS (3)
  - Blood urine present [Recovering/Resolving]
  - Urinary tract pain [Recovering/Resolving]
  - Urinary tract infection [Recovering/Resolving]
